FAERS Safety Report 26095619 (Version 2)
Quarter: 2025Q4

REPORT INFORMATION
  Report Type: Spontaneous
  Country: JP (occurrence: JP)
  Receive Date: 20251127
  Receipt Date: 20251224
  Transmission Date: 20260118
  Serious: Yes (Death, Life-Threatening, Hospitalization, Other)
  Sender: TAKEDA
  Company Number: JP-TAKEDA-2025TJP012015

PATIENT
  Age: 8 Decade
  Sex: Female

DRUGS (1)
  1. ALUNBRIG [Suspect]
     Active Substance: BRIGATINIB
     Indication: Lung neoplasm malignant
     Dosage: 180 MILLIGRAM, QD
     Dates: start: 20221107, end: 20240520

REACTIONS (1)
  - Lung carcinoma cell type unspecified recurrent [Fatal]

NARRATIVE: CASE EVENT DATE: 20240520
